FAERS Safety Report 6673482-2 (Version None)
Quarter: 2010Q2

REPORT INFORMATION
  Report Type: 
  Country: None (occurrence: None)
  Receive Date: 20100408
  Receipt Date: 20100330
  Transmission Date: 20101027
  Serious: Yes (Hospitalization)
  Sender: FDA-Public Use
  Company Number: US-BAXTER-2010BH008597

PATIENT
  Age: 65 Year
  Sex: Female

DRUGS (1)
  1. DIANEAL [Suspect]
     Indication: ASCITES
     Route: 033
     Dates: start: 20060101, end: 20100214

REACTIONS (2)
  - HYPOTENSION [None]
  - TACHYCARDIA [None]
